FAERS Safety Report 19037111 (Version 1)
Quarter: 2021Q1

REPORT INFORMATION
  Report Type: Spontaneous
  Country: US (occurrence: US)
  Receive Date: 20210322
  Receipt Date: 20210322
  Transmission Date: 20210420
  Serious: Yes (Other)
  Sender: FDA-Public Use
  Company Number: US-PROCTER_AND_GAMBLE-PH21002499

PATIENT
  Age: 19 Year
  Sex: Female

DRUGS (1)
  1. VICKS NYQUIL COLD AND FLU NIGHTTIME RELIEF [Suspect]
     Active Substance: ACETAMINOPHEN\DEXTROMETHORPHAN HYDROBROMIDE\DOXYLAMINE SUCCINATE
     Indication: FEELING ABNORMAL
     Dosage: UNK, LIQCAP
     Route: 048

REACTIONS (5)
  - Oropharyngeal pain [Unknown]
  - Dyspnoea [Recovered/Resolved]
  - Choking [Recovered/Resolved]
  - Foreign body in throat [Unknown]
  - Product use complaint [Unknown]
